FAERS Safety Report 9964438 (Version 1)
Quarter: 2014Q1

REPORT INFORMATION
  Report Type: Spontaneous
  Country: CL (occurrence: CL)
  Receive Date: 20140305
  Receipt Date: 20140305
  Transmission Date: 20141002
  Serious: Yes (Death, Other)
  Sender: FDA-Public Use
  Company Number: CL-PFIZER INC-2014062800

PATIENT
  Age: 67 Year
  Sex: Female

DRUGS (1)
  1. LYRICA [Suspect]
     Indication: BREAST CANCER
     Dosage: 150 MG ONCE A DAY AND 75MG TWICE A DAY
     Route: 048
     Dates: start: 2013

REACTIONS (2)
  - Off label use [Fatal]
  - Death [Fatal]
